FAERS Safety Report 6185077-8 (Version None)
Quarter: 2009Q2

REPORT INFORMATION
  Report Type: 
  Country: None (occurrence: None)
  Receive Date: 20090511
  Receipt Date: 20090507
  Transmission Date: 20091009
  Serious: Yes (Other)
  Sender: FDA-Public Use
  Company Number: FR-JNJFOC-20090302314

PATIENT
  Age: 64 Year
  Sex: Male

DRUGS (7)
  1. TAVANIC [Suspect]
     Route: 048
  2. TAVANIC [Suspect]
     Indication: CHRONIC OBSTRUCTIVE PULMONARY DISEASE
     Route: 048
  3. BUDESONIDE [Concomitant]
     Indication: LUNG DISORDER
     Route: 055
  4. LASIX [Concomitant]
     Indication: HYPERTENSION
     Route: 048
  5. MONO-TILDIEM [Concomitant]
     Indication: HYPERTENSION
     Route: 048
  6. NEXIUM [Concomitant]
     Indication: GASTRITIS
     Route: 048
  7. SPIRIVA [Concomitant]
     Indication: CHRONIC OBSTRUCTIVE PULMONARY DISEASE
     Route: 055

REACTIONS (4)
  - DRUG ADMINISTRATION ERROR [None]
  - FALL [None]
  - TENDON RUPTURE [None]
  - TENDONITIS [None]
